FAERS Safety Report 23939111 (Version 3)
Quarter: 2024Q3

REPORT INFORMATION
  Report Type: Spontaneous
  Country: DE (occurrence: DE)
  Receive Date: 20240604
  Receipt Date: 20240717
  Transmission Date: 20241017
  Serious: Yes (Hospitalization)
  Sender: SAMSUNG BIOEPIS
  Company Number: DE-SAMSUNG BIOEPIS-SB-2024-16500

PATIENT
  Age: 63 Year
  Sex: Female

DRUGS (1)
  1. ONTRUZANT [Suspect]
     Active Substance: TRASTUZUMAB-DTTB
     Indication: Breast cancer
     Dosage: 8MG/KG;
     Route: 065
     Dates: start: 20240516

REACTIONS (6)
  - Pyrexia [Recovered/Resolved]
  - Chills [Recovered/Resolved]
  - Cough [Recovered/Resolved]
  - Ear pain [Recovered/Resolved]
  - Headache [Recovered/Resolved]
  - Pneumonia [Recovered/Resolved]
